FAERS Safety Report 10146846 (Version 1)
Quarter: 2014Q2

REPORT INFORMATION
  Report Type: Spontaneous
  Country: US (occurrence: US)
  Receive Date: 20140501
  Receipt Date: 20140501
  Transmission Date: 20141212
  Serious: Yes (Hospitalization)
  Sender: FDA-Public Use
  Company Number: US-TEVA-478069USA

PATIENT
  Sex: Female

DRUGS (1)
  1. QVAR [Suspect]

REACTIONS (1)
  - Asthma [Unknown]
